FAERS Safety Report 24297478 (Version 1)
Quarter: 2024Q3

REPORT INFORMATION
  Report Type: Report from Study
  Country: JP (occurrence: JP)
  Receive Date: 20240909
  Receipt Date: 20240909
  Transmission Date: 20241017
  Serious: Yes (Other)
  Sender: ALNYLAM PHARMACEUTICALS
  Company Number: JP-ALNYLAM PHARMACEUTICALS, INC.-ALN-2023-001465

PATIENT

DRUGS (10)
  1. AMVUTTRA [Suspect]
     Active Substance: VUTRISIRAN
     Indication: Hereditary neuropathic amyloidosis
     Dosage: 25 MILLIGRAM, Q3M
     Route: 058
     Dates: start: 20230313, end: 20240219
  2. Chocola a [Concomitant]
     Indication: Vitamin supplementation
     Dosage: 2500 INTERNATIONAL UNIT, QD
     Route: 048
     Dates: start: 20230313
  3. ELDECALCITOL [Concomitant]
     Active Substance: ELDECALCITOL
     Indication: Osteoporosis
     Dosage: 0.75 MICROGRAM
     Route: 048
  4. ASPIRIN [Concomitant]
     Active Substance: ASPIRIN
     Indication: Thrombosis prophylaxis
     Dosage: 100 MILLIGRAM
     Route: 048
  5. LANSOPRAZOLE [Concomitant]
     Active Substance: LANSOPRAZOLE
     Indication: Prophylaxis
     Dosage: 15 MILLIGRAM
     Route: 048
  6. ATORVASTATIN [Concomitant]
     Active Substance: ATORVASTATIN
     Indication: Lipid metabolism disorder
     Dosage: 5 MILLIGRAM
     Route: 048
  7. DOMPERIDONE [Concomitant]
     Active Substance: DOMPERIDONE
     Indication: Chronic gastritis
     Dosage: 30 MILLIGRAM
     Route: 048
  8. MIYA-BM [Concomitant]
     Active Substance: CLOSTRIDIUM BUTYRICUM SPORES STRAIN M-55
     Indication: Diarrhoea
     Dosage: 3 GRAM
     Route: 048
  9. LEVETIRACETAM [Concomitant]
     Active Substance: LEVETIRACETAM
     Indication: Epilepsy
     Dosage: 250 MILLIGRAM
     Route: 048
  10. ALBUMIN TANNATE [Concomitant]
     Active Substance: ALBUMIN TANNATE
     Indication: Hereditary neuropathic amyloidosis
     Dosage: 3 GRAM
     Route: 048

REACTIONS (13)
  - Retinal haemorrhage [Recovered/Resolved]
  - Optic disc haemorrhage [Recovered/Resolved]
  - Optic disc haemorrhage [Recovered/Resolved]
  - Retinal haemorrhage [Recovered/Resolved]
  - Optic disc haemorrhage [Recovered/Resolved]
  - Retinal haemorrhage [Not Recovered/Not Resolved]
  - Optic disc haemorrhage [Not Recovered/Not Resolved]
  - Optic disc haemorrhage [Not Recovered/Not Resolved]
  - Optic disc haemorrhage [Not Recovered/Not Resolved]
  - Retinal haemorrhage [Recovered/Resolved]
  - Optic disc haemorrhage [Unknown]
  - Optic disc haemorrhage [Recovered/Resolved]
  - Visual acuity reduced [Not Recovered/Not Resolved]

NARRATIVE: CASE EVENT DATE: 20230323
